FAERS Safety Report 8493984-6 (Version None)
Quarter: 2012Q3

REPORT INFORMATION
  Report Type: 
  Country: None (occurrence: None)
  Receive Date: 20120709
  Receipt Date: 20120702
  Transmission Date: 20120928
  Serious: Yes (Hospitalization)
  Sender: FDA-Public Use
  Company Number: US-BIOGENIDEC-2012BI020686

PATIENT
  Age: 59 Year
  Sex: Female

DRUGS (2)
  1. AVONEX [Concomitant]
     Route: 030
     Dates: start: 20120629
  2. TYSABRI [Suspect]
     Indication: MULTIPLE SCLEROSIS
     Route: 042
     Dates: start: 20120412, end: 20120412

REACTIONS (4)
  - LOWER LIMB FRACTURE [None]
  - THROAT TIGHTNESS [None]
  - ANKLE FRACTURE [None]
  - FALL [None]
